FAERS Safety Report 6064713-0 (Version None)
Quarter: 2009Q1

REPORT INFORMATION
  Report Type: 
  Country: None (occurrence: None)
  Receive Date: 20090204
  Receipt Date: 20080721
  Transmission Date: 20090719
  Serious: No
  Sender: FDA-Public Use
  Company Number: A0738645A

PATIENT
  Age: 79 Year
  Sex: Female

DRUGS (2)
  1. ARIXTRA [Suspect]
     Dosage: 2.5MG PER DAY
     Route: 058
     Dates: start: 20080601
  2. ANTIBIOTICS [Concomitant]

REACTIONS (1)
  - OEDEMA PERIPHERAL [None]
